FAERS Safety Report 23386458 (Version 1)
Quarter: 2024Q1

REPORT INFORMATION
  Report Type: Spontaneous
  Country: US (occurrence: US)
  Receive Date: 20240110
  Receipt Date: 20240110
  Transmission Date: 20240410
  Serious: No
  Sender: FDA-Public Use
  Company Number: US-SA-SAC20240105000220

PATIENT
  Age: 13 Year
  Sex: Female
  Weight: 70.299 kg

DRUGS (4)
  1. DUPIXENT [Suspect]
     Active Substance: DUPILUMAB
     Indication: Dermatitis atopic
     Dosage: 300 MG, QOW
     Route: 058
  2. ALBUTEROL SULFATE [Concomitant]
     Active Substance: ALBUTEROL SULFATE
  3. FLUTICASONE PROPIONATE\SALMETEROL XINAFOATE [Concomitant]
     Active Substance: FLUTICASONE PROPIONATE\SALMETEROL XINAFOATE
  4. FLONASE ALLERGY RELIEF [Concomitant]
     Active Substance: FLUTICASONE PROPIONATE

REACTIONS (3)
  - Dry skin [Not Recovered/Not Resolved]
  - Pruritus [Not Recovered/Not Resolved]
  - Inappropriate schedule of product administration [Unknown]

NARRATIVE: CASE EVENT DATE: 20231201
